FAERS Safety Report 8592694-4 (Version None)
Quarter: 2012Q3

REPORT INFORMATION
  Report Type: 
  Country: None (occurrence: None)
  Receive Date: 20120814
  Receipt Date: 20120626
  Transmission Date: 20120928
  Serious: Yes (Death)
  Sender: FDA-Public Use
  Company Number: US-COVIDIEN/TYCO HEALTHCARE/MALLINCKRODT-T201202663

PATIENT
  Age: 2 Year
  Sex: Male

DRUGS (1)
  1. FENTANYL [Suspect]
     Dosage: UNK

REACTIONS (2)
  - ACCIDENTAL EXPOSURE [None]
  - TOXICITY TO VARIOUS AGENTS [None]
